FAERS Safety Report 9092297 (Version 4)
Quarter: 2013Q1

REPORT INFORMATION
  Report Type: Report from Study
  Country: DE (occurrence: DE)
  Receive Date: 20130201
  Receipt Date: 20130326
  Transmission Date: 20140127
  Serious: Yes (Death, Hospitalization)
  Sender: FDA-Public Use
  Company Number: DE-AMGEN-DEUCT2013006848

PATIENT
  Age: 69 Year
  Sex: Male

DRUGS (14)
  1. PANITUMUMAB [Suspect]
     Indication: NON-SMALL CELL LUNG CANCER
     Dosage: 9 MG/KG, UNK
     Dates: start: 20111115, end: 20111115
  2. PEMETREXED [Concomitant]
     Indication: NON-SMALL CELL LUNG CANCER
     Dosage: 500 MG/M2, UNK
     Dates: start: 20111115, end: 20111115
  3. CISPLATIN [Concomitant]
     Indication: NON-SMALL CELL LUNG CANCER
     Dosage: 75 MG/M2, UNK
     Dates: start: 20111115, end: 20111115
  4. NOVALGIN [Concomitant]
     Dosage: 30 GTT, QID
     Route: 048
     Dates: end: 20111118
  5. PANTOZOL [Concomitant]
     Dosage: 20 MG, QD
     Route: 048
     Dates: end: 20111118
  6. ZOPICLONE [Concomitant]
     Dosage: 7.5 MG, QHS
     Route: 048
     Dates: end: 20111118
  7. LACTULOSE [Concomitant]
     Dosage: 20 ML, TID
     Route: 048
     Dates: end: 20111118
  8. TRYASOL [Concomitant]
     Dosage: 20 GTT, QHS
     Route: 048
     Dates: end: 20111118
  9. LORZAAR [Concomitant]
     Dosage: UNK UNK, BID
     Route: 048
     Dates: end: 20111118
  10. FOLSAN [Concomitant]
     Dosage: 0.4 MG, BID
     Route: 048
     Dates: end: 20111118
  11. MOVICOL [Concomitant]
     Dosage: 6.9 G, UNK
     Route: 048
     Dates: end: 20111118
  12. SEVREDOL [Concomitant]
     Dosage: 10 MG, UNK
     Route: 048
     Dates: end: 20111118
  13. FENTANYL [Concomitant]
     Dosage: 25 MUG, UNK
     Dates: end: 20111118
  14. FOLIC ACID [Concomitant]

REACTIONS (1)
  - Acute myocardial infarction [Fatal]
